FAERS Safety Report 5787737-7 (Version None)
Quarter: 2008Q2

REPORT INFORMATION
  Report Type: 
  Country: None (occurrence: None)
  Receive Date: 20080625
  Receipt Date: 20080619
  Transmission Date: 20081010
  Serious: Yes (Hospitalization)
  Sender: FDA-Public Use
  Company Number: CH-ASTRAZENECA-2008PK01332

PATIENT
  Age: 77 Year
  Sex: Male

DRUGS (12)
  1. ATACAND [Suspect]
     Route: 048
     Dates: end: 20080312
  2. TOREM [Suspect]
     Route: 048
     Dates: end: 20080120
  3. TOREM [Suspect]
     Route: 048
     Dates: start: 20080121, end: 20080312
  4. TOREM [Suspect]
     Route: 048
     Dates: start: 20080301
  5. NITRODERM [Suspect]
     Route: 062
     Dates: end: 20080312
  6. CARVEDILOL [Suspect]
     Route: 048
  7. ALDACTONE [Suspect]
     Route: 048
  8. CORDARONE [Concomitant]
     Route: 048
  9. ASPIRIN [Concomitant]
     Route: 048
  10. SINTROM [Concomitant]
     Route: 048
  11. ZOCOR [Concomitant]
     Route: 048
  12. INSULIN [Concomitant]
     Route: 058

REACTIONS (3)
  - DRUG INTERACTION [None]
  - HYPOTENSION [None]
  - SYNCOPE [None]
